FAERS Safety Report 17674627 (Version 3)
Quarter: 2020Q2

REPORT INFORMATION
  Report Type: Report from Study
  Country: None (occurrence: US)
  Receive Date: 20200416
  Receipt Date: 20200526
  Transmission Date: 20200714
  Serious: No
  Sender: FDA-Public Use
  Company Number: US-BIOVITRUM-2020US1797

PATIENT
  Age: 54 Year
  Sex: Female

DRUGS (2)
  1. KINERET [Suspect]
     Active Substance: ANAKINRA
     Route: 058
  2. KINERET [Suspect]
     Active Substance: ANAKINRA
     Indication: STILL^S DISEASE
     Route: 058
     Dates: start: 20190418

REACTIONS (28)
  - Pyrexia [Unknown]
  - Depression [Unknown]
  - Pain [Unknown]
  - Fatigue [Unknown]
  - Peripheral coldness [Unknown]
  - Nodal osteoarthritis [Unknown]
  - Musculoskeletal stiffness [Unknown]
  - Dry eye [Unknown]
  - Product dose omission [Unknown]
  - Swelling [Unknown]
  - Arthralgia [Unknown]
  - Insomnia [Unknown]
  - Joint noise [Unknown]
  - Unevaluable event [Unknown]
  - Scar [Unknown]
  - Headache [Unknown]
  - Off label use [Not Recovered/Not Resolved]
  - Myalgia [Unknown]
  - Bone pain [Unknown]
  - Tenderness [Unknown]
  - Bone disorder [Unknown]
  - Malaise [Unknown]
  - Joint range of motion decreased [Unknown]
  - Rash [Unknown]
  - Osteoarthritis [Unknown]
  - Intentional product misuse [Not Recovered/Not Resolved]
  - Pain in extremity [Unknown]
  - Walking aid user [Unknown]

NARRATIVE: CASE EVENT DATE: 20190418
